FAERS Safety Report 14769160 (Version 1)
Quarter: 2018Q2

REPORT INFORMATION
  Report Type: Spontaneous
  Country: PT (occurrence: PT)
  Receive Date: 20180417
  Receipt Date: 20180417
  Transmission Date: 20180711
  Serious: Yes (Other)
  Sender: FDA-Public Use
  Company Number: PT-MYLANLABS-2018M1023151

PATIENT
  Age: 47 Year
  Sex: Male
  Weight: 90 kg

DRUGS (1)
  1. BRUFEN 600MG FILM-COATED TABLETS [Suspect]
     Active Substance: IBUPROFEN
     Indication: INFLUENZA
     Dosage: 1 DF, QD
     Route: 048

REACTIONS (1)
  - Generalised oedema [Recovered/Resolved]
